FAERS Safety Report 9404521 (Version 1)
Quarter: 2013Q3

REPORT INFORMATION
  Report Type: Spontaneous
  Country: JP (occurrence: JP)
  Receive Date: 20130717
  Receipt Date: 20130717
  Transmission Date: 20140515
  Serious: Yes (Other)
  Sender: FDA-Public Use
  Company Number: JP-ASTELLAS-2013JP006825

PATIENT
  Age: 32 Year
  Sex: Female

DRUGS (4)
  1. PROTOPIC [Suspect]
     Indication: DERMATITIS ATOPIC
     Dosage: 0.1 %, UNK
     Route: 061
     Dates: start: 20110528, end: 201306
  2. BIOTIN [Concomitant]
     Indication: ECZEMA
     Dosage: 1 MG, BID
     Route: 048
     Dates: start: 20110528, end: 201306
  3. CLARITIN                           /00917501/ [Concomitant]
     Indication: ECZEMA
     Dosage: 10 MG, UID/QD
     Route: 048
     Dates: start: 20110528, end: 201306
  4. CLARITIN                           /00917501/ [Concomitant]
     Indication: DERMATITIS

REACTIONS (2)
  - Exposure during pregnancy [Unknown]
  - Abortion [Unknown]
